FAERS Safety Report 10009594 (Version 2)
Quarter: 2014Q1

REPORT INFORMATION
  Report Type: Spontaneous
  Country: US (occurrence: US)
  Receive Date: 20140312
  Receipt Date: 20140312
  Transmission Date: 20141002
  Serious: Yes (Other)
  Sender: FDA-Public Use
  Company Number: US-INCYTE CORPORATION-2012IN001803

PATIENT
  Age: 58 Year
  Sex: Female
  Weight: 47.2 kg

DRUGS (10)
  1. JAKAFI [Suspect]
     Indication: MYELOFIBROSIS
     Dosage: 15 MG, BID
     Route: 048
     Dates: start: 201208, end: 20120910
  2. JAKAFI [Suspect]
     Dosage: 5 MG, BID
     Route: 048
     Dates: start: 20120911
  3. NOVOLOG [Concomitant]
  4. NIFEDIPINE [Concomitant]
  5. METOPROLOL [Concomitant]
  6. FOLIC ACID [Concomitant]
  7. LOSARTAN [Concomitant]
  8. JANUVIA [Concomitant]
  9. HYDROXYZINE [Concomitant]
  10. VOLTAREN [Concomitant]
     Route: 031

REACTIONS (3)
  - Platelet count decreased [Not Recovered/Not Resolved]
  - Blood glucose decreased [Recovered/Resolved]
  - Asthenia [Unknown]
